FAERS Safety Report 8773494 (Version 2)
Quarter: 2012Q4

REPORT INFORMATION
  Report Type: 
  Country: AU (occurrence: AU)
  Receive Date: 20120907
  Receipt Date: 20120907
  Transmission Date: 20130627
  Serious: Yes (Other)
  Sender: FDA-Public Use
  Company Number: PHHY2012AU074105

PATIENT
  Sex: Female
  Weight: 61 kg

DRUGS (6)
  1. ACLASTA [Suspect]
     Indication: OSTEOPOROSIS
     Dosage: 5 mg, yearly
     Route: 042
     Dates: start: 20110728
  2. VITAMIN D [Concomitant]
     Route: 048
  3. CYMBALTA [Concomitant]
     Dosage: 60 mg, UNK
  4. WARFARIN [Concomitant]
  5. ANALGESICS [Concomitant]
  6. NEXIUM [Concomitant]

REACTIONS (3)
  - Spinal compression fracture [Unknown]
  - Fracture pain [Unknown]
  - Drug ineffective [Unknown]
